FAERS Safety Report 10547582 (Version 1)
Quarter: 2014Q4

REPORT INFORMATION
  Report Type: Spontaneous
  Country: US (occurrence: US)
  Receive Date: 20141028
  Receipt Date: 20141028
  Transmission Date: 20150529
  Serious: Yes (Hospitalization)
  Sender: FDA-Public Use
  Company Number: US-ROCHE-1478938

PATIENT
  Age: 61 Year
  Sex: Female
  Weight: 64.4 kg

DRUGS (4)
  1. AVASTIN [Suspect]
     Active Substance: BEVACIZUMAB
     Indication: GLIOBLASTOMA
     Route: 065
     Dates: start: 20141008
  2. VORINOSTAT [Suspect]
     Active Substance: VORINOSTAT
     Indication: GLIOBLASTOMA
     Dosage: TAKEN DAYS 1-7 AND 15-21 OF 28 DAY CYCLE
     Route: 048
     Dates: start: 20141008, end: 20141014
  3. ATIVAN [Concomitant]
     Active Substance: LORAZEPAM
     Dosage: AS NEEDED
     Route: 065
  4. LISINOPRIL. [Concomitant]
     Active Substance: LISINOPRIL
     Route: 065

REACTIONS (2)
  - Enterocolitis [Unknown]
  - Diverticulitis [None]

NARRATIVE: CASE EVENT DATE: 20141013
